FAERS Safety Report 8329223-6 (Version None)
Quarter: 2012Q2

REPORT INFORMATION
  Report Type: 
  Country: None (occurrence: None)
  Receive Date: 20120430
  Receipt Date: 20120416
  Transmission Date: 20120825
  Serious: Yes (Hospitalization)
  Sender: FDA-Public Use
  Company Number: US-MERCK KGAA-7126393

PATIENT
  Sex: Male
  Weight: 3 kg

DRUGS (1)
  1. CYANOKIT [Suspect]
     Dosage: TRANSPLACENTAL
     Route: 064

REACTIONS (5)
  - TACHYCARDIA FOETAL [None]
  - AMNIOCENTESIS ABNORMAL [None]
  - FOETAL EXPOSURE DURING PREGNANCY [None]
  - CARBOXYHAEMOGLOBIN INCREASED [None]
  - CHROMATURIA [None]
